FAERS Safety Report 24136891 (Version 1)
Quarter: 2024Q3

REPORT INFORMATION
  Report Type: Spontaneous
  Country: US (occurrence: US)
  Receive Date: 20240725
  Receipt Date: 20240725
  Transmission Date: 20241017
  Serious: Yes (Hospitalization)
  Sender: TORRENT
  Company Number: US-MLMSERVICE-20240712-PI125158-00285-2

PATIENT
  Age: 24 Year
  Sex: Male

DRUGS (3)
  1. RISPERIDONE [Suspect]
     Active Substance: RISPERIDONE
     Indication: Behaviour disorder
     Dosage: UNKNOWN
     Route: 065
  2. LITHIUM [Concomitant]
     Active Substance: LITHIUM
     Indication: Behaviour disorder
     Dosage: UNKNOWN
     Route: 065
  3. VALPROIC ACID [Concomitant]
     Active Substance: VALPROIC ACID
     Indication: Behaviour disorder
     Dosage: UNKNOWN
     Route: 065

REACTIONS (2)
  - Catatonia [Recovered/Resolved]
  - Social avoidant behaviour [Recovered/Resolved]
